FAERS Safety Report 9709154 (Version 3)
Quarter: 2014Q1

REPORT INFORMATION
  Report Type: Report from Study
  Country: US (occurrence: US)
  Receive Date: 20131125
  Receipt Date: 20140219
  Transmission Date: 20141002
  Serious: No
  Sender: FDA-Public Use
  Company Number: US-VERTEX PHARMACEUTICALS INC-2013-011322

PATIENT
  Age: 49 Year
  Sex: Male
  Weight: 87.53 kg

DRUGS (4)
  1. VX-950 (TELAPREVIR) [Suspect]
     Indication: HEPATITIS C
     Dosage: 750 MG, TID
     Route: 048
     Dates: start: 20131025, end: 20140114
  2. RIBAVIRIN [Suspect]
     Indication: HEPATITIS C
     Dosage: 2 TABS AM, 3 TABS PM
     Dates: start: 20131025, end: 20140114
  3. PEGASYS [Suspect]
     Indication: HEPATITIS C
     Dosage: 180 ?G, QW
     Dates: start: 20131025, end: 20140114
  4. NEXIUM [Concomitant]

REACTIONS (17)
  - Dyspnoea [Recovered/Resolved]
  - Dehydration [Recovered/Resolved]
  - Hepatic pain [Unknown]
  - Insomnia [Recovered/Resolved]
  - Dry throat [Recovered/Resolved]
  - Night sweats [Not Recovered/Not Resolved]
  - Increased appetite [Unknown]
  - Constipation [Unknown]
  - Bronchitis [Not Recovered/Not Resolved]
  - Upper respiratory tract infection [Unknown]
  - Weight increased [Recovering/Resolving]
  - Appetite disorder [Not Recovered/Not Resolved]
  - Asthenia [Recovering/Resolving]
  - Skin irritation [Recovering/Resolving]
  - Urticaria [Recovering/Resolving]
  - Nausea [Unknown]
  - Diarrhoea [Not Recovered/Not Resolved]
